FAERS Safety Report 8962586 (Version 1)
Quarter: 2012Q4

REPORT INFORMATION
  Report Type: 
  Country: GB (occurrence: GB)
  Receive Date: 20121213
  Receipt Date: 20121213
  Transmission Date: 20130627
  Serious: Yes (Other)
  Sender: FDA-Public Use
  Company Number: GB-BANPHARM-20120408

PATIENT
  Age: 30 Year
  Sex: Female
  Weight: 58.06 kg

DRUGS (4)
  1. IBUPROFEN UNKNOWN PRODUCT [Suspect]
     Indication: ROOT ABSCESS
     Dosage: 12 DF, QD,
     Route: 048
     Dates: start: 20120201, end: 20120207
  2. PARACETAMOL [Suspect]
     Indication: ROOT ABSCESS
     Dosage: 12 DF, QD
     Dates: start: 20120201, end: 20120207
  3. ANTACID [Concomitant]
  4. GAVISCON [Concomitant]

REACTIONS (2)
  - Gastritis [Not Recovered/Not Resolved]
  - Overdose [Unknown]
